FAERS Safety Report 7513158-2 (Version None)
Quarter: 2011Q2

REPORT INFORMATION
  Report Type: 
  Country: None (occurrence: None)
  Receive Date: 20110531
  Receipt Date: 20110523
  Transmission Date: 20111010
  Serious: Yes (Disabling, Other)
  Sender: FDA-Public Use
  Company Number: US-MERCK-0805USA00682

PATIENT
  Age: 67 Year
  Sex: Female
  Weight: 55 kg

DRUGS (4)
  1. FOSAMAX [Suspect]
     Indication: OSTEOPOROSIS
     Route: 048
     Dates: start: 20000714
  2. EVISTA [Concomitant]
     Route: 065
  3. HORMONES (UNSPECIFIED) [Concomitant]
     Route: 065
     Dates: start: 20000714, end: 20050301
  4. LIPITOR [Concomitant]
     Route: 065

REACTIONS (8)
  - JAW DISORDER [None]
  - OSTEOMYELITIS [None]
  - ALANINE AMINOTRANSFERASE INCREASED [None]
  - SENSITIVITY OF TEETH [None]
  - DENTAL NECROSIS [None]
  - FUNGAL INFECTION [None]
  - OSTEONECROSIS OF JAW [None]
  - GINGIVAL PAIN [None]
